FAERS Safety Report 9879439 (Version 1)
Quarter: 2014Q1

REPORT INFORMATION
  Report Type: Spontaneous
  Country: PR (occurrence: PR)
  Receive Date: 20140206
  Receipt Date: 20140206
  Transmission Date: 20141002
  Serious: No
  Sender: FDA-Public Use
  Company Number: PR-GILEAD-2013-0084268

PATIENT
  Sex: Male

DRUGS (6)
  1. STRIBILD [Suspect]
     Indication: PRODUCT USED FOR UNKNOWN INDICATION
     Dosage: UNK
     Route: 065
     Dates: start: 201309
  2. EMTRICITABINE/TENOFOVIR DF [Concomitant]
     Indication: PRODUCT USED FOR UNKNOWN INDICATION
  3. DARUNAVIR [Concomitant]
  4. RITONAVIR [Concomitant]
  5. SEPTRA DS [Concomitant]
     Dosage: UNK
  6. ZITHROMAX [Concomitant]
     Dosage: UNK

REACTIONS (1)
  - Rash maculo-papular [Recovering/Resolving]
